FAERS Safety Report 14174220 (Version 1)
Quarter: 2017Q4

REPORT INFORMATION
  Report Type: Report from Study
  Country: US (occurrence: US)
  Receive Date: 20171109
  Receipt Date: 20171109
  Transmission Date: 20180321
  Serious: Yes (Hospitalization, Other)
  Sender: FDA-Public Use
  Company Number: US-ARIAD-2017US009191

PATIENT
  Age: 43 Year
  Sex: Male
  Weight: 97 kg

DRUGS (1)
  1. ICLUSIG [Suspect]
     Active Substance: PONATINIB
     Indication: CHRONIC MYELOID LEUKAEMIA
     Dosage: 30 MG, QD
     Route: 048
     Dates: start: 20140327

REACTIONS (9)
  - Diarrhoea [Recovered/Resolved]
  - Renal cyst [Unknown]
  - Pancreatitis chronic [Unknown]
  - Peripheral embolism [Unknown]
  - Polycythaemia [Unknown]
  - Peripheral ischaemia [Unknown]
  - Insomnia [Unknown]
  - Erectile dysfunction [Unknown]
  - Blood pressure inadequately controlled [Unknown]

NARRATIVE: CASE EVENT DATE: 20140925
